FAERS Safety Report 9995759 (Version 1)
Quarter: 2014Q1

REPORT INFORMATION
  Report Type: Spontaneous
  Country: US (occurrence: None)
  Receive Date: 20140225
  Receipt Date: 20140225
  Transmission Date: 20141002
  Serious: Yes (Other)
  Sender: FDA-Public Use
  Company Number: 2013-US-000256

PATIENT
  Age: 67 Year
  Sex: Female

DRUGS (1)
  1. PRIALT [Suspect]
     Dosage: UNK UG, QH, INTRATHECAL
     Route: 037

REACTIONS (1)
  - Hallucination [None]
